FAERS Safety Report 5156242-3 (Version None)
Quarter: 2006Q4

REPORT INFORMATION
  Report Type: 
  Country: None (occurrence: None)
  Receive Date: 20061122
  Receipt Date: 20061026
  Transmission Date: 20070319
  Serious: Yes (Disabling)
  Sender: FDA-Public Use
  Company Number: GB-ELI_LILLY_AND_COMPANY-GB200610004814

PATIENT
  Age: 69 Year
  Sex: Female
  Weight: 52 kg

DRUGS (8)
  1. SERETIDE ^GLAXO WELLCOME^ [Concomitant]
     Indication: CHRONIC OBSTRUCTIVE PULMONARY DISEASE
     Dosage: 2 D/F, 2/D
     Dates: start: 20040628
  2. SALBUTAMOL [Concomitant]
     Indication: CHRONIC OBSTRUCTIVE PULMONARY DISEASE
     Dosage: 2 D/F, AS NEEDED
     Dates: start: 20010828
  3. EVISTA [Suspect]
     Indication: OSTEOPOROSIS
     Dosage: 60 MG, UNK
     Route: 048
     Dates: start: 20040301, end: 20061108
  4. EVISTA [Suspect]
     Dosage: 60 MG, UNK
     Route: 048
     Dates: start: 20061108
  5. NIFEDIPINE [Concomitant]
     Indication: HYPERTENSION
     Dosage: 20 MG, 2/D
     Dates: start: 19920217
  6. AZATHIOPRINE [Concomitant]
     Indication: POLYARTERITIS NODOSA
     Dosage: 50 MG, DAILY (1/D)
     Route: 048
     Dates: start: 19890407
  7. VITAMIN D [Concomitant]
  8. CALCIUM [Concomitant]

REACTIONS (1)
  - BONE DENSITY DECREASED [None]
